FAERS Safety Report 8116067-3 (Version None)
Quarter: 2012Q1

REPORT INFORMATION
  Report Type: 
  Country: None (occurrence: None)
  Receive Date: 20120206
  Receipt Date: 20120201
  Transmission Date: 20120608
  Serious: Yes (Other)
  Sender: FDA-Public Use
  Company Number: US-PFIZER INC-2012029119

PATIENT
  Sex: Female

DRUGS (1)
  1. LYRICA [Suspect]
     Dosage: UNK

REACTIONS (6)
  - HYPERSOMNIA [None]
  - HEARING IMPAIRED [None]
  - OROPHARYNGEAL PAIN [None]
  - LARYNGITIS [None]
  - EYELID DISORDER [None]
  - AUTOIMMUNE DISORDER [None]
